FAERS Safety Report 5467403-8 (Version None)
Quarter: 2007Q3

REPORT INFORMATION
  Report Type: 
  Country: None (occurrence: None)
  Receive Date: 20070925
  Receipt Date: 20070913
  Transmission Date: 20080115
  Serious: Yes (Other)
  Sender: FDA-Public Use
  Company Number: JP-PFIZER INC-2007076957

PATIENT
  Sex: Female

DRUGS (2)
  1. XALATAN [Suspect]
     Indication: NORMAL TENSION GLAUCOMA
  2. AZOPT [Suspect]
     Indication: NORMAL TENSION GLAUCOMA

REACTIONS (1)
  - PROTEINURIA [None]
